FAERS Safety Report 4436104-7 (Version None)
Quarter: 2004Q3

REPORT INFORMATION
  Report Type: 
  Country: None (occurrence: None)
  Receive Date: 20040726
  Receipt Date: 20040423
  Transmission Date: 20050211
  Serious: No
  Sender: FDA-Public Use
  Company Number: USA030535837

PATIENT
  Age: 67 Year
  Sex: Female
  Weight: 51 kg

DRUGS (7)
  1. FORTEO [Suspect]
     Indication: OSTEOPOROSIS
     Dosage: 20 UG DAY
     Dates: start: 20030130
  2. ASPIRIN [Concomitant]
  3. CALCIUM [Concomitant]
  4. DEPAKOTE [Concomitant]
  5. MAGNESIUM [Concomitant]
  6. MULTIVITAMIN [Concomitant]
  7. VITAMIN E [Concomitant]

REACTIONS (2)
  - MUSCLE CRAMP [None]
  - PAIN IN EXTREMITY [None]
